FAERS Safety Report 23549160 (Version 1)
Quarter: 2024Q1

REPORT INFORMATION
  Report Type: Spontaneous
  Country: US (occurrence: None)
  Receive Date: 20240220
  Receipt Date: 20240220
  Transmission Date: 20240409
  Serious: No
  Sender: FDA-Public Use
  Company Number: None

PATIENT
  Sex: Female

DRUGS (1)
  1. PROMACTA [Suspect]
     Active Substance: ELTROMBOPAG OLAMINE
     Indication: Myelodysplastic syndrome with excess blasts
     Route: 048

REACTIONS (8)
  - Intentional dose omission [None]
  - Dizziness [None]
  - Dyspnoea [None]
  - Fall [None]
  - Joint injury [None]
  - Neck pain [None]
  - Asthenia [None]
  - Fatigue [None]
